FAERS Safety Report 13101871 (Version 1)
Quarter: 2017Q1

REPORT INFORMATION
  Report Type: Spontaneous
  Country: US (occurrence: US)
  Receive Date: 20170110
  Receipt Date: 20170110
  Transmission Date: 20170428
  Serious: No
  Sender: FDA-Public Use
  Company Number: None

PATIENT
  Age: 33 Year
  Sex: Female
  Weight: 63 kg

DRUGS (12)
  1. LAMICTAL XR [Concomitant]
     Active Substance: LAMOTRIGINE
  2. ZONAGRAN [Concomitant]
  3. XIIDRA [Suspect]
     Active Substance: LIFITEGRAST
     Indication: DRY EYE
     Dosage: ?          QUANTITY:1 DROP(S);?
     Route: 047
     Dates: start: 20170109, end: 20170110
  4. RESTASIS [Concomitant]
     Active Substance: CYCLOSPORINE
  5. RAPAMUNE [Concomitant]
     Active Substance: SIROLIMUS
  6. KLONOPIN [Concomitant]
     Active Substance: CLONAZEPAM
  7. OMEPRAZOLE. [Concomitant]
     Active Substance: OMEPRAZOLE
  8. EXCEDRIN MIGRAINE [Concomitant]
     Active Substance: ACETAMINOPHEN\ASPIRIN\CAFFEINE
  9. MULTIVITAMIN [Concomitant]
     Active Substance: VITAMINS
  10. ESTRADIOL. [Concomitant]
     Active Substance: ESTRADIOL
  11. PROGESTERONE. [Concomitant]
     Active Substance: PROGESTERONE
  12. IBUPROPHEN [Concomitant]
     Active Substance: IBUPROFEN

REACTIONS (7)
  - Lacrimation increased [None]
  - Dysgeusia [None]
  - Headache [None]
  - Eye irritation [None]
  - Vision blurred [None]
  - Asthenia [None]
  - Eye pain [None]

NARRATIVE: CASE EVENT DATE: 20170109
